FAERS Safety Report 6442763-X (Version None)
Quarter: 2009Q4

REPORT INFORMATION
  Report Type: 
  Country: None (occurrence: None)
  Receive Date: 20091117
  Receipt Date: 20091031
  Transmission Date: 20100525
  Serious: No
  Sender: FDA-Public Use
  Company Number: JP-ROCHE-666999

PATIENT
  Sex: Male

DRUGS (1)
  1. TAMIFLU [Suspect]
     Indication: INFLUENZA
     Dosage: REPORTED DRUG: TAMIFLU CAPSULE (OSELTAMIVIR)
     Route: 048
     Dates: start: 20091030

REACTIONS (2)
  - ACCIDENTAL OVERDOSE [None]
  - NO ADVERSE EVENT [None]
